FAERS Safety Report 10977105 (Version 3)
Quarter: 2015Q3

REPORT INFORMATION
  Report Type: Report from Study
  Country: MX (occurrence: MX)
  Receive Date: 20150402
  Receipt Date: 20150803
  Transmission Date: 20151125
  Serious: Yes (Congenital Anomaly)
  Sender: FDA-Public Use
  Company Number: MX-ROCHE-1557755

PATIENT
  Age: 0 Day
  Sex: Male
  Weight: 2.4 kg

DRUGS (1)
  1. ROACTEMRA [Suspect]
     Active Substance: TOCILIZUMAB
     Indication: PRODUCT USED FOR UNKNOWN INDICATION
     Route: 064

REACTIONS (4)
  - Oesophageal atresia [Recovered/Resolved]
  - Atrial septal defect [Recovered/Resolved]
  - Exposure via father [Unknown]
  - Premature baby [Unknown]

NARRATIVE: CASE EVENT DATE: 20140511
